FAERS Safety Report 9732538 (Version 1)
Quarter: 2013Q4

REPORT INFORMATION
  Report Type: Spontaneous
  Country: US (occurrence: US)
  Receive Date: 20131205
  Receipt Date: 20131205
  Transmission Date: 20140711
  Serious: Yes (Other)
  Sender: FDA-Public Use
  Company Number: US-BAYER-2013-147486

PATIENT
  Age: 17 Year
  Sex: Female
  Weight: 73.47 kg

DRUGS (3)
  1. YAZ [Suspect]
  2. ULTRAM [Concomitant]
  3. VICODIN [Concomitant]

REACTIONS (1)
  - Deep vein thrombosis [Recovering/Resolving]
